FAERS Safety Report 6357154-X (Version None)
Quarter: 2009Q3

REPORT INFORMATION
  Report Type: 
  Country: None (occurrence: None)
  Receive Date: 20090910
  Receipt Date: 20090826
  Transmission Date: 20100115
  Serious: Yes (Hospitalization)
  Sender: FDA-Public Use
  Company Number: US-000825

PATIENT
  Sex: Male

DRUGS (1)
  1. FIRMAGON [Suspect]
     Indication: PROSTATE CANCER
     Dosage: 240 MG 1X/MONTH SUBCUTANEOUS
     Route: 058
     Dates: start: 20090826

REACTIONS (1)
  - SMALL INTESTINAL OBSTRUCTION [None]
